FAERS Safety Report 19603450 (Version 1)
Quarter: 2021Q3

REPORT INFORMATION
  Report Type: Report from Study
  Country: DE (occurrence: DE)
  Receive Date: 20210723
  Receipt Date: 20210723
  Transmission Date: 20211014
  Serious: Yes (Other)
  Sender: FDA-Public Use
  Company Number: DE-TAKEDA-2020TUS051756

PATIENT
  Age: 61 Year
  Sex: Female

DRUGS (22)
  1. TEDUGLUTIDE [Suspect]
     Active Substance: TEDUGLUTIDE
     Indication: SHORT-BOWEL SYNDROME
     Dosage: 3 MILLIGRAM (DAILY DOSE 0.05 MG/KG), TED DOSES PER WEEK 7
     Route: 065
     Dates: start: 20201112, end: 20201208
  2. HUMALOG [Concomitant]
     Active Substance: INSULIN LISPRO
     Indication: DIABETES MELLITUS
     Dosage: 1 INTERNATIONAL UNIT
     Route: 058
     Dates: start: 202003
  3. PREGABADOR [Concomitant]
     Active Substance: PREGABALIN
     Dosage: 25 MILLIGRAM, QD
     Route: 048
  4. TEDUGLUTIDE [Suspect]
     Active Substance: TEDUGLUTIDE
     Dosage: 2.4 MILLIGRAM (0.04 MG/KG), 7 DOSES PER WEEK
     Route: 065
     Dates: start: 20201216
  5. LEFAX [Concomitant]
     Active Substance: DIMETHICONE
     Indication: ABDOMINAL DISTENSION
     Dosage: 2 TABS
     Route: 060
     Dates: start: 202103
  6. IBUFLAM [Concomitant]
     Indication: CONDITION AGGRAVATED
  7. TEDUGLUTIDE [Suspect]
     Active Substance: TEDUGLUTIDE
     Dosage: 2 MILLIGRAM (0.0330 MG/KG), 7 DOSES PER WEEK
     Route: 065
     Dates: start: 20201209, end: 20201215
  8. TEDUGLUTIDE [Suspect]
     Active Substance: TEDUGLUTIDE
     Dosage: 2.4 MILLIGRAM (0.04 MG/KG), 7 DOSES PER WEEK
     Route: 065
     Dates: start: 20201216
  9. TEDUGLUTIDE [Suspect]
     Active Substance: TEDUGLUTIDE
     Indication: SHORT-BOWEL SYNDROME
     Dosage: 3 MILLIGRAM (DAILY DOSE 0.05 MG/KG), TED DOSES PER WEEK 7
     Route: 065
     Dates: start: 20201112, end: 20201208
  10. TEDUGLUTIDE [Suspect]
     Active Substance: TEDUGLUTIDE
     Indication: SHORT-BOWEL SYNDROME
     Dosage: 3 MILLIGRAM (DAILY DOSE 0.05 MG/KG), TED DOSES PER WEEK 7
     Route: 065
     Dates: start: 20201112, end: 20201208
  11. TEDUGLUTIDE [Suspect]
     Active Substance: TEDUGLUTIDE
     Indication: SHORT-BOWEL SYNDROME
     Dosage: 3 MILLIGRAM (DAILY DOSE 0.05 MG/KG), TED DOSES PER WEEK 7
     Route: 065
     Dates: start: 20201112, end: 20201208
  12. TEDUGLUTIDE [Suspect]
     Active Substance: TEDUGLUTIDE
     Dosage: 2 MILLIGRAM (0.0330 MG/KG), 7 DOSES PER WEEK
     Route: 065
     Dates: start: 20201209, end: 20201215
  13. TEDUGLUTIDE [Suspect]
     Active Substance: TEDUGLUTIDE
     Dosage: 2.4 MILLIGRAM (0.04 MG/KG), 7 DOSES PER WEEK
     Route: 065
     Dates: start: 20201216
  14. FENTANYL TRANSDERMAL SYSTEM [Concomitant]
     Active Substance: FENTANYL
     Indication: PAIN
     Dosage: 25 MICROGRAM, 3/WEEK
     Route: 062
     Dates: start: 20200215
  15. TEDUGLUTIDE [Suspect]
     Active Substance: TEDUGLUTIDE
     Dosage: 2 MILLIGRAM (0.0330 MG/KG), 7 DOSES PER WEEK
     Route: 065
     Dates: start: 20201209, end: 20201215
  16. TEDUGLUTIDE [Suspect]
     Active Substance: TEDUGLUTIDE
     Dosage: 2.4 MILLIGRAM (0.04 MG/KG), 7 DOSES PER WEEK
     Route: 065
     Dates: start: 20201216
  17. ABASAGLAR [Concomitant]
     Active Substance: INSULIN GLARGINE
     Indication: DIABETES MELLITUS
     Dosage: 1 INTERNATIONAL UNIT, QD
     Route: 058
     Dates: start: 202003
  18. NOVAMINSULFON [Concomitant]
     Active Substance: METAMIZOLE
     Indication: CONDITION AGGRAVATED
  19. TEDUGLUTIDE [Suspect]
     Active Substance: TEDUGLUTIDE
     Dosage: 2 MILLIGRAM (0.0330 MG/KG), 7 DOSES PER WEEK
     Route: 065
     Dates: start: 20201209, end: 20201215
  20. PREDNISOLON [Concomitant]
     Active Substance: PREDNISOLONE
     Indication: RHEUMATIC DISORDER
     Dosage: 5 MILLIGRAM, QD
     Route: 048
     Dates: start: 20210119
  21. NOVAMINSULFON [Concomitant]
     Active Substance: METAMIZOLE
     Indication: RHEUMATIC FEVER
     Dosage: 500 MILLIGRAM, TID
     Route: 048
     Dates: start: 20201221, end: 202101
  22. IBUFLAM [Concomitant]
     Indication: RHEUMATIC FEVER
     Dosage: 600 MILLIGRAM, QID
     Route: 048
     Dates: start: 20201221, end: 202101

REACTIONS (6)
  - Condition aggravated [Not Recovered/Not Resolved]
  - Blood glucose increased [Recovered/Resolved]
  - Liver function test increased [Not Recovered/Not Resolved]
  - Rheumatic fever [Not Recovered/Not Resolved]
  - Abdominal pain [Recovered/Resolved]
  - Headache [Recovered/Resolved]

NARRATIVE: CASE EVENT DATE: 20201116
